FAERS Safety Report 6742066-X (Version None)
Quarter: 2010Q2

REPORT INFORMATION
  Report Type: 
  Country: None (occurrence: None)
  Receive Date: 20100526
  Receipt Date: 20100518
  Transmission Date: 20101027
  Serious: Yes (Life-Threatening)
  Sender: FDA-Public Use
  Company Number: FR-SANOFI-AVENTIS-2010SA028576

PATIENT
  Age: 77 Year
  Sex: Female

DRUGS (25)
  1. LASIX [Suspect]
     Indication: DRUG USE FOR UNKNOWN INDICATION
     Route: 048
     Dates: start: 20080912, end: 20080913
  2. MEPRONIZINE [Suspect]
     Indication: DRUG USE FOR UNKNOWN INDICATION
     Route: 048
     Dates: start: 20080912, end: 20080918
  3. SECTRAL [Suspect]
     Indication: DRUG USE FOR UNKNOWN INDICATION
     Route: 048
     Dates: start: 20080912, end: 20080913
  4. SECTRAL [Suspect]
     Route: 048
     Dates: start: 20080914, end: 20080918
  5. TOPALGIC [Suspect]
     Indication: DRUG USE FOR UNKNOWN INDICATION
     Route: 048
     Dates: start: 20080912, end: 20080913
  6. TERCIAN [Suspect]
     Indication: AGITATION
     Dosage: DOSE:40 MILLIGRAM(S)/MILLILITRE
     Route: 048
     Dates: start: 20080916, end: 20080917
  7. TERCIAN [Suspect]
     Indication: INSOMNIA
     Dosage: DOSE:40 MILLIGRAM(S)/MILLILITRE
     Route: 048
     Dates: start: 20080916, end: 20080917
  8. LOXAPAC [Suspect]
     Indication: DRUG USE FOR UNKNOWN INDICATION
     Route: 048
     Dates: start: 20080912, end: 20080915
  9. TRIHEXYPHENIDYL HCL [Suspect]
     Indication: DRUG USE FOR UNKNOWN INDICATION
     Route: 048
     Dates: start: 20080912, end: 20080913
  10. RISPERDAL [Suspect]
     Indication: DRUG USE FOR UNKNOWN INDICATION
     Route: 048
     Dates: start: 20080912, end: 20080913
  11. RIVOTRIL [Suspect]
     Indication: DRUG USE FOR UNKNOWN INDICATION
     Route: 048
     Dates: start: 20080912, end: 20080913
  12. RIVOTRIL [Suspect]
     Route: 048
     Dates: start: 20080914, end: 20080916
  13. THERALENE [Suspect]
     Indication: DRUG USE FOR UNKNOWN INDICATION
     Route: 048
     Dates: start: 20080912, end: 20080915
  14. ATHYMIL [Suspect]
     Indication: DRUG USE FOR UNKNOWN INDICATION
     Route: 048
     Dates: start: 20080915, end: 20080916
  15. LOXEN [Suspect]
     Indication: DRUG USE FOR UNKNOWN INDICATION
     Route: 048
     Dates: start: 20080916, end: 20080918
  16. NORSET [Suspect]
     Indication: AGITATION
     Route: 048
     Dates: start: 20080916, end: 20080917
  17. NORSET [Suspect]
     Indication: INSOMNIA
     Route: 048
     Dates: start: 20080916, end: 20080917
  18. SERESTA [Suspect]
     Indication: AGITATION
     Route: 048
     Dates: start: 20080916, end: 20080917
  19. SERESTA [Suspect]
     Indication: INSOMNIA
     Route: 048
     Dates: start: 20080916, end: 20080917
  20. DOLIPRANE [Concomitant]
     Indication: DRUG USE FOR UNKNOWN INDICATION
     Route: 048
     Dates: start: 20080912, end: 20080918
  21. IXEL [Concomitant]
     Indication: DRUG USE FOR UNKNOWN INDICATION
     Route: 048
     Dates: start: 20080912, end: 20080918
  22. PREVISCAN [Concomitant]
     Indication: DRUG USE FOR UNKNOWN INDICATION
     Route: 048
     Dates: start: 20080912, end: 20080913
  23. PREVISCAN [Concomitant]
     Route: 048
     Dates: start: 20080914, end: 20080918
  24. TRIATEC [Concomitant]
     Indication: DRUG USE FOR UNKNOWN INDICATION
     Route: 048
     Dates: start: 20080913, end: 20080918
  25. PEVARYL [Concomitant]
     Indication: DRUG USE FOR UNKNOWN INDICATION
     Route: 067
     Dates: start: 20080915, end: 20080918

REACTIONS (3)
  - COMA [None]
  - DRUG INTERACTION [None]
  - OVERDOSE [None]
